FAERS Safety Report 6737519-4 (Version None)
Quarter: 2010Q2

REPORT INFORMATION
  Report Type: 
  Country: None (occurrence: None)
  Receive Date: 20100524
  Receipt Date: 20100518
  Transmission Date: 20101027
  Serious: Yes (Death, Life-Threatening, Hospitalization, Other)
  Sender: FDA-Public Use
  Company Number: JP-BAYER-200913626BYL

PATIENT
  Age: 71 Year
  Sex: Male
  Weight: 76 kg

DRUGS (31)
  1. NEXAVAR [Suspect]
     Indication: HEPATIC NEOPLASM MALIGNANT
     Dosage: TOTAL DAILY DOSE: 800 MG  UNIT DOSE: 200 MG
     Route: 048
     Dates: start: 20090824, end: 20090924
  2. LETRAC [Concomitant]
     Dosage: SINCE BEFORE ADMINISTRATION
     Route: 048
     Dates: end: 20090831
  3. PRAVASTATIN SODIUM [Concomitant]
     Indication: HYPERLIPIDAEMIA
     Dosage: SINCE BEFORE ADMINISTRATION
     Route: 048
     Dates: end: 20090915
  4. NU-LOTAN [Concomitant]
     Indication: HYPERTENSION
     Dosage: SINCE BEFORE ADMINISTRATION
     Route: 048
     Dates: end: 20091011
  5. CALSLOT [Concomitant]
     Indication: HYPERTENSION
     Dosage: SINCE BEFORE ADMINISTRATION
     Route: 048
     Dates: end: 20091011
  6. URSO 250 [Concomitant]
     Indication: HEPATITIS
     Dosage: SINCE BEFORE ADMINISTRATION
     Route: 048
     Dates: end: 20091011
  7. MUCODYNE [Concomitant]
     Indication: PRODUCTIVE COUGH
     Dosage: SINCE BEFORE ADMINISTRATION
     Route: 048
     Dates: end: 20091011
  8. PYDOXAL [Concomitant]
     Indication: PROPHYLAXIS
     Route: 048
     Dates: start: 20090824, end: 20090924
  9. HIRUDOID [Concomitant]
     Indication: PROPHYLAXIS
     Route: 061
     Dates: start: 20090824, end: 20090924
  10. CASODEX [Concomitant]
     Indication: PROSTATE CANCER
     Route: 048
     Dates: start: 20090827, end: 20090829
  11. OXYCONTIN [Concomitant]
     Route: 048
     Dates: start: 20090831, end: 20091011
  12. OXINORM [Concomitant]
     Route: 048
     Dates: start: 20090831, end: 20091011
  13. MOBIC [Concomitant]
     Route: 048
     Dates: start: 20090831, end: 20091010
  14. MAGLAX [Concomitant]
     Route: 048
     Dates: start: 20090831, end: 20091011
  15. PURSENNID [Concomitant]
     Route: 048
     Dates: start: 20090831, end: 20091011
  16. ZOLADEX [Concomitant]
     Indication: PROSTATE CANCER
     Route: 058
     Dates: start: 20090831, end: 20090831
  17. BARACLUDE [Concomitant]
     Indication: HEPATITIS B
     Route: 048
     Dates: start: 20090901, end: 20091011
  18. OPYSTAN [Concomitant]
     Indication: INVESTIGATION
     Dosage: UNIT DOSE: 35 MG
     Route: 042
     Dates: start: 20090908, end: 20090908
  19. ROHYPNOL [Concomitant]
     Indication: INVESTIGATION
     Route: 042
     Dates: start: 20090908, end: 20090908
  20. FAMOSTAGINE-D [Concomitant]
     Indication: GASTRITIS PROPHYLAXIS
     Route: 048
     Dates: start: 20090925, end: 20091006
  21. LASIX [Concomitant]
     Route: 048
     Dates: start: 20091010, end: 20091010
  22. LASIX [Concomitant]
     Route: 048
     Dates: start: 20091001, end: 20091009
  23. ALDACTONE [Concomitant]
     Route: 048
     Dates: start: 20091001, end: 20091009
  24. ALDACTONE [Concomitant]
     Route: 048
     Dates: start: 20091010, end: 20091010
  25. LEUPROLIDE ACETATE [Concomitant]
     Indication: PROSTATE CANCER
     Route: 058
     Dates: start: 20091001, end: 20091001
  26. PIARLE [Concomitant]
     Route: 048
     Dates: start: 20091006, end: 20091006
  27. FUROSEMIDE [Concomitant]
     Route: 042
     Dates: start: 20091006, end: 20091011
  28. SOLDACTONE [Concomitant]
     Route: 042
     Dates: start: 20091006, end: 20091011
  29. FAMOTIDINE [Concomitant]
     Indication: GASTRITIS PROPHYLAXIS
     Route: 042
     Dates: start: 20091006, end: 20091012
  30. MORPHINE HYDROCHLORIDE [Concomitant]
     Route: 042
     Dates: start: 20091011, end: 20091012
  31. TAKEPRON [Concomitant]
     Indication: GASTRITIS PROPHYLAXIS
     Route: 048
     Dates: start: 20091008, end: 20091008

REACTIONS (9)
  - BENIGN PROSTATIC HYPERPLASIA [None]
  - CANCER PAIN [None]
  - CHOLANGITIS [None]
  - CONSTIPATION [None]
  - HEPATIC ENCEPHALOPATHY [None]
  - HEPATIC NEOPLASM MALIGNANT [None]
  - LIVER DISORDER [None]
  - PANCREATITIS [None]
  - RASH [None]
